FAERS Safety Report 17678044 (Version 5)
Quarter: 2020Q3

REPORT INFORMATION
  Report Type: Report from Study
  Country: None (occurrence: US)
  Receive Date: 20200417
  Receipt Date: 20200709
  Transmission Date: 20201102
  Serious: Yes (Hospitalization, Other)
  Sender: FDA-Public Use
  Company Number: US-ABBVIE-20P-163-3314417-00

PATIENT
  Sex: Male

DRUGS (4)
  1. IMBRUVICA [Suspect]
     Active Substance: IBRUTINIB
     Route: 048
     Dates: start: 20200504, end: 20200514
  2. IMBRUVICA [Suspect]
     Active Substance: IBRUTINIB
     Route: 048
     Dates: start: 20200304
  3. IMBRUVICA [Suspect]
     Active Substance: IBRUTINIB
     Route: 048
     Dates: start: 20200304
  4. IMBRUVICA [Suspect]
     Active Substance: IBRUTINIB
     Indication: NON-HODGKIN^S LYMPHOMA
     Route: 048
     Dates: start: 20200303

REACTIONS (10)
  - Febrile neutropenia [Unknown]
  - Red blood cell count increased [Unknown]
  - Blood immunoglobulin M abnormal [Unknown]
  - Glomerular filtration rate increased [Unknown]
  - Increased appetite [Unknown]
  - Night sweats [Unknown]
  - Energy increased [Recovering/Resolving]
  - Pyrexia [Unknown]
  - Atrial fibrillation [Unknown]
  - Neutrophil count abnormal [Unknown]

NARRATIVE: CASE EVENT DATE: 2020
